FAERS Safety Report 16846468 (Version 1)
Quarter: 2019Q3

REPORT INFORMATION
  Report Type: Spontaneous
  Country: FR (occurrence: FR)
  Receive Date: 20190924
  Receipt Date: 20190924
  Transmission Date: 20191005
  Serious: Yes (Death, Other)
  Sender: FDA-Public Use
  Company Number: FR-PFM-2019-11487

PATIENT

DRUGS (2)
  1. CAPECITABINE. [Suspect]
     Active Substance: CAPECITABINE
     Indication: MYELODYSPLASTIC SYNDROME
     Dosage: 2250 MG, QD (1000 MG THE MORNING AND 1250 MG THE EVENING)
     Route: 048
  2. VINORELBINE [Suspect]
     Active Substance: VINORELBINE TARTRATE
     Indication: BREAST CANCER METASTATIC
     Dosage: 30 MG, DAILY
     Route: 048

REACTIONS (15)
  - Renal impairment [Not Recovered/Not Resolved]
  - Mucosal inflammation [Unknown]
  - Hepatic function abnormal [Not Recovered/Not Resolved]
  - Nausea [Unknown]
  - Decreased appetite [Unknown]
  - Sepsis [Not Recovered/Not Resolved]
  - Erythema [Unknown]
  - Thrombocytopenia [Not Recovered/Not Resolved]
  - Dermatitis exfoliative generalised [Unknown]
  - General physical condition abnormal [Not Recovered/Not Resolved]
  - Palmar-plantar erythrodysaesthesia syndrome [Unknown]
  - Vomiting [Unknown]
  - Hepatocellular injury [Fatal]
  - Vitamin K decreased [Not Recovered/Not Resolved]
  - Neutropenia [Not Recovered/Not Resolved]
